FAERS Safety Report 4854183-X (Version None)
Quarter: 2005Q4

REPORT INFORMATION
  Report Type: 
  Country: None (occurrence: None)
  Receive Date: 20051213
  Receipt Date: 20051205
  Transmission Date: 20060501
  Serious: Yes (Other)
  Sender: FDA-Public Use
  Company Number: 2005164263

PATIENT
  Sex: Female

DRUGS (20)
  1. BEXTRA [Suspect]
     Indication: OSTEOARTHRITIS
     Dates: end: 20051101
  2. BEXTRA [Suspect]
     Indication: RHEUMATOID ARTHRITIS
     Dates: end: 20051101
  3. CELEBREX [Suspect]
     Indication: ILL-DEFINED DISORDER
     Dates: start: 20050101
  4. ISOPTIN SR [Concomitant]
  5. THYROID TAB [Concomitant]
  6. SINGULAIR MERCK (MONTELUKAST SODIUM) [Concomitant]
  7. COMBIVENT [Concomitant]
  8. DYAZIDE [Concomitant]
  9. MAXZIDE [Concomitant]
  10. ALLERGY MEDICATION (ALLERGY MEDICATION) [Concomitant]
  11. PREMARIN [Concomitant]
  12. CARAFATE [Concomitant]
  13. PEPCID [Concomitant]
  14. MUCINEX (GUAIFENESIN) [Concomitant]
  15. VITAMIN B12 [Concomitant]
  16. MULTIVITAMIN [Concomitant]
  17. IRON (IRON) [Concomitant]
  18. ZYLOPRIM [Concomitant]
  19. ASPIRIN [Concomitant]
  20. LIPITOR [Concomitant]

REACTIONS (10)
  - ASTHMA [None]
  - BLOOD CHOLESTEROL INCREASED [None]
  - BLOOD PRESSURE INCREASED [None]
  - FEMALE GENITAL OPERATION [None]
  - FLUSHING [None]
  - GASTROOESOPHAGEAL REFLUX DISEASE [None]
  - HEADACHE [None]
  - PALPITATIONS [None]
  - POST PROCEDURAL COMPLICATION [None]
  - SPINAL OPERATION [None]
